FAERS Safety Report 20691521 (Version 2)
Quarter: 2022Q2

REPORT INFORMATION
  Report Type: Spontaneous
  Country: JP (occurrence: JP)
  Receive Date: 20220408
  Receipt Date: 20220429
  Transmission Date: 20220720
  Serious: Yes (Death, Other)
  Sender: FDA-Public Use
  Company Number: JP-MSD-M2022-14131

PATIENT
  Sex: Female

DRUGS (1)
  1. ZERBAXA [Suspect]
     Active Substance: CEFTOLOZANE SULFATE\TAZOBACTAM SODIUM
     Dosage: ONE DAY 4 VIALS
     Route: 041
     Dates: start: 20220401, end: 20220404

REACTIONS (2)
  - Sepsis [Fatal]
  - Underdose [Unknown]

NARRATIVE: CASE EVENT DATE: 20220401
